FAERS Safety Report 4316897-X (Version None)
Quarter: 2004Q1

REPORT INFORMATION
  Report Type: 
  Country: None (occurrence: None)
  Receive Date: 20040312
  Receipt Date: 20040312
  Transmission Date: 20041129
  Serious: Yes (Other)
  Sender: FDA-Public Use
  Company Number: None

PATIENT
  Sex: Female
  Weight: 43.5453 kg

DRUGS (8)
  1. DARBEPOSTIN 200 MG ARANESP [Suspect]
     Indication: ANAEMIA
     Dosage: 200 Q2WEEKS SUBCUTANEOUS
     Route: 058
     Dates: start: 20040213, end: 20040213
  2. DARBEPOSTIN 200 MG ARANESP [Suspect]
     Indication: CHEMOTHERAPY
     Dosage: 200 Q2WEEKS SUBCUTANEOUS
     Route: 058
     Dates: start: 20040213, end: 20040213
  3. LISINOPRIL [Concomitant]
  4. PREMARIN [Concomitant]
  5. BEXTRA [Concomitant]
  6. TETRACYCLINE [Concomitant]
  7. HYDROMORPHONE [Concomitant]
  8. WELLBUTRIN [Concomitant]

REACTIONS (4)
  - BLOOD PRESSURE INCREASED [None]
  - HEART RATE INCREASED [None]
  - RESPIRATORY RATE INCREASED [None]
  - SWELLING FACE [None]
